FAERS Safety Report 9726537 (Version 1)
Quarter: 2013Q4

REPORT INFORMATION
  Report Type: Spontaneous
  Country: US (occurrence: US)
  Receive Date: 20131203
  Receipt Date: 20131203
  Transmission Date: 20140711
  Serious: Yes (Hospitalization)
  Sender: FDA-Public Use
  Company Number: US-GLAXOSMITHKLINE-A1037194A

PATIENT
  Age: 50 Year
  Sex: Female

DRUGS (3)
  1. FLOLAN [Suspect]
     Indication: COR PULMONALE CHRONIC
     Dosage: 44.12NGKM UNKNOWN
     Route: 065
     Dates: start: 20060923
  2. ADCIRCA [Suspect]
     Indication: PRODUCT USED FOR UNKNOWN INDICATION
     Route: 065
     Dates: end: 201309
  3. COUMADIN [Concomitant]

REACTIONS (10)
  - Feeling abnormal [Unknown]
  - Device malfunction [Unknown]
  - Medical device removal [Unknown]
  - Dyspnoea [Unknown]
  - Asthenia [Unknown]
  - Fluid retention [Unknown]
  - Arthralgia [Unknown]
  - Back pain [Unknown]
  - Vision blurred [Unknown]
  - Insomnia [Unknown]
